FAERS Safety Report 8154829 (Version 8)
Quarter: 2013Q1

REPORT INFORMATION
  Report Type: Report from Study
  Country: CZ (occurrence: CZ)
  Receive Date: 20110923
  Receipt Date: 20130118
  Transmission Date: 20140127
  Serious: Yes (Other)
  Sender: FDA-Public Use
  Company Number: CZ-ABBOTT-11P-217-0853196-01

PATIENT
  Age: 63 Year
  Sex: Male
  Weight: 85 kg

DRUGS (5)
  1. HUMIRA [Suspect]
     Indication: CROHN^S DISEASE
     Route: 058
     Dates: start: 20091013
  2. HUMIRA [Suspect]
     Route: 058
     Dates: end: 20110908
  3. PREDNISONE [Concomitant]
     Indication: CROHN^S DISEASE
  4. AZATHIOPRINE [Concomitant]
     Indication: CROHN^S DISEASE
  5. 5 ASA [Concomitant]
     Indication: CROHN^S DISEASE

REACTIONS (2)
  - Squamous cell carcinoma [Recovered/Resolved]
  - Carcinoid tumour of the gastrointestinal tract [Recovered/Resolved]
